FAERS Safety Report 19885223 (Version 1)
Quarter: 2021Q3

REPORT INFORMATION
  Report Type: Report from Study
  Country: None (occurrence: US)
  Receive Date: 20210927
  Receipt Date: 20210927
  Transmission Date: 20211014
  Serious: Yes (Hospitalization, Other)
  Sender: FDA-Public Use
  Company Number: US-ABBVIE-21K-163-4092402-00

PATIENT
  Sex: Male

DRUGS (1)
  1. HUMIRA [Suspect]
     Active Substance: ADALIMUMAB
     Indication: COLITIS ULCERATIVE
     Dosage: CITRATE FREE
     Route: 058

REACTIONS (8)
  - Ileostomy [Unknown]
  - Colitis ulcerative [Unknown]
  - Asthenia [Unknown]
  - Post procedural complication [Recovering/Resolving]
  - Surgery [Recovering/Resolving]
  - Obstruction gastric [Recovering/Resolving]
  - Weight decreased [Unknown]
  - Extra dose administered [Unknown]
